FAERS Safety Report 10557788 (Version 2)
Quarter: 2014Q4

REPORT INFORMATION
  Report Type: Spontaneous
  Country: US (occurrence: US)
  Receive Date: 20141031
  Receipt Date: 20141031
  Transmission Date: 20150529
  Serious: Yes (Death, Hospitalization)
  Sender: FDA-Public Use
  Company Number: US-ARIAD-2013US003534

PATIENT

DRUGS (1)
  1. ICLUSIG [Suspect]
     Active Substance: PONATINIB
     Indication: CHRONIC MYELOID LEUKAEMIA
     Dosage: 30 MG, QD
     Route: 048
     Dates: start: 20130525, end: 20130717

REACTIONS (13)
  - Brain natriuretic peptide increased [Unknown]
  - Anaemia [Unknown]
  - Blood alkaline phosphatase increased [Unknown]
  - Pleural effusion [Unknown]
  - Prothrombin time prolonged [Unknown]
  - Pneumonia [Unknown]
  - Bacteraemia [Unknown]
  - International normalised ratio increased [Unknown]
  - Blast crisis in myelogenous leukaemia [Unknown]
  - Febrile neutropenia [Unknown]
  - Cardio-respiratory arrest [Fatal]
  - White blood cell disorder [Unknown]
  - Thrombocytopenia [Unknown]

NARRATIVE: CASE EVENT DATE: 20130727
